FAERS Safety Report 9341365 (Version 1)
Quarter: 2013Q2

REPORT INFORMATION
  Report Type: Spontaneous
  Country: US (occurrence: US)
  Receive Date: 20130611
  Receipt Date: 20130611
  Transmission Date: 20140414
  Serious: No
  Sender: FDA-Public Use
  Company Number: US-ASTRAZENECA-2013SE38085

PATIENT
  Age: 25 Year
  Sex: Female

DRUGS (2)
  1. NEXIUM [Suspect]
     Indication: GASTROOESOPHAGEAL REFLUX DISEASE
     Dosage: 40 MG TWICE A MONTH
     Route: 048
     Dates: start: 2008, end: 201211
  2. IBUPROPHEN [Concomitant]

REACTIONS (4)
  - Maternal exposure before pregnancy [Not Recovered/Not Resolved]
  - Exposure during pregnancy [Recovered/Resolved]
  - Diarrhoea [Unknown]
  - Intentional drug misuse [Unknown]
